FAERS Safety Report 6894410-0 (Version None)
Quarter: 2010Q3

REPORT INFORMATION
  Report Type: 
  Country: None (occurrence: None)
  Receive Date: 20100802
  Receipt Date: 20100722
  Transmission Date: 20110219
  Serious: Yes (Hospitalization, Other)
  Sender: FDA-Public Use
  Company Number: US-ASTRAZENECA-2010SE22355

PATIENT
  Age: 69 Year
  Sex: Female
  Weight: 63.5 kg

DRUGS (7)
  1. FASLODEX [Suspect]
     Indication: RECURRENT CANCER
     Route: 030
     Dates: start: 20070101
  2. FASLODEX [Suspect]
     Indication: BREAST CANCER METASTATIC
     Route: 030
     Dates: start: 20070101
  3. COUMADIN [Concomitant]
     Indication: THROMBOSIS
  4. ZOMETA [Concomitant]
  5. HYDROCODONE BITARTRATE [Concomitant]
     Indication: PAIN
  6. XYCODONE [Concomitant]
     Indication: PAIN
  7. LYRICA [Concomitant]
     Indication: PAIN

REACTIONS (11)
  - BENIGN BONE NEOPLASM [None]
  - BONE NEOPLASM MALIGNANT [None]
  - BONE PAIN [None]
  - DYSPNOEA [None]
  - FUNGAL INFECTION [None]
  - HOT FLUSH [None]
  - NAUSEA [None]
  - PAIN [None]
  - PHARYNGITIS [None]
  - THROMBOSIS [None]
  - TUMOUR MARKER INCREASED [None]
